FAERS Safety Report 8303895-4 (Version None)
Quarter: 2012Q2

REPORT INFORMATION
  Report Type: 
  Country: None (occurrence: None)
  Receive Date: 20120423
  Receipt Date: 20120418
  Transmission Date: 20120825
  Serious: Yes (Life-Threatening, Hospitalization)
  Sender: FDA-Public Use
  Company Number: PHHY2012FR033279

PATIENT
  Sex: Female
  Weight: 56 kg

DRUGS (7)
  1. LASIX [Concomitant]
     Dosage: UNK
  2. FASLODEX [Concomitant]
     Dosage: UNK
  3. POTASSIUM CHLORIDE [Concomitant]
     Dosage: UNK
  4. TRAMADOL HCL [Concomitant]
     Dosage: UNK
  5. ZOMETA [Suspect]
     Indication: METASTASES TO BONE
     Dosage: 4 MG, EVERY 21 DAYS
     Dates: start: 20100101
  6. ZOMETA [Suspect]
     Dosage: 4 MG, EVERY 28 DAYS
     Dates: start: 20110901
  7. ZOMETA [Suspect]
     Dosage: 3 MG
     Dates: start: 20120101

REACTIONS (10)
  - RENAL TUBULAR DISORDER [None]
  - URINE OUTPUT DECREASED [None]
  - ANURIA [None]
  - RENAL TUBULAR NECROSIS [None]
  - METABOLIC ACIDOSIS [None]
  - CONFUSIONAL STATE [None]
  - DYSPNOEA [None]
  - RENAL FAILURE ACUTE [None]
  - HYPERKALAEMIA [None]
  - OEDEMA PERIPHERAL [None]
